FAERS Safety Report 11556412 (Version 2)
Quarter: 2015Q4

REPORT INFORMATION
  Report Type: Spontaneous
  Country: US (occurrence: US)
  Receive Date: 20150925
  Receipt Date: 20151015
  Transmission Date: 20160304
  Serious: Yes (Other)
  Sender: FDA-Public Use
  Company Number: US-PFIZER INC-2015311372

PATIENT
  Age: 85 Year
  Sex: Male
  Weight: 100 kg

DRUGS (14)
  1. FISH OIL [Concomitant]
     Active Substance: FISH OIL
     Dosage: UNK
  2. CYMBALTA [Suspect]
     Active Substance: DULOXETINE HYDROCHLORIDE
     Indication: SPINAL PAIN
  3. LIPITOR [Concomitant]
     Active Substance: ATORVASTATIN CALCIUM
     Dosage: UNK
  4. VITAMIN B1 /00056101/ [Concomitant]
     Dosage: UNK
  5. NEURONTIN [Suspect]
     Active Substance: GABAPENTIN
     Indication: SPINAL PAIN
  6. TOPROL XL [Concomitant]
     Active Substance: METOPROLOL SUCCINATE
     Dosage: UNK
  7. ARAVA [Concomitant]
     Active Substance: LEFLUNOMIDE
     Dosage: UNK
  8. ASPIRIN. [Concomitant]
     Active Substance: ASPIRIN
     Dosage: UNK
  9. NEURONTIN [Suspect]
     Active Substance: GABAPENTIN
     Indication: PAIN
     Dosage: 300 MG, 2X/DAY
     Route: 048
     Dates: start: 20100306, end: 20100307
  10. CYMBALTA [Suspect]
     Active Substance: DULOXETINE HYDROCHLORIDE
     Indication: PAIN
     Dosage: 60 MG, 1X/DAY
     Route: 048
     Dates: start: 20120530, end: 20120531
  11. ZOCOR [Concomitant]
     Active Substance: SIMVASTATIN
     Dosage: UNK
  12. EXFORGE HCT [Concomitant]
     Active Substance: AMLODIPINE BESYLATE\HYDROCHLOROTHIAZIDE\VALSARTAN
     Dosage: UNK
  13. CENTRUM SILVER /02363801/ [Concomitant]
     Active Substance: MINERALS\VITAMINS
     Dosage: UNK
  14. FOLBEE [Concomitant]
     Dosage: UNK

REACTIONS (5)
  - Syncope [Recovered/Resolved]
  - Pain [Unknown]
  - Product use issue [Unknown]
  - Apparent death [Unknown]
  - Condition aggravated [Unknown]

NARRATIVE: CASE EVENT DATE: 20100306
